FAERS Safety Report 9686142 (Version 1)
Quarter: 2013Q4

REPORT INFORMATION
  Report Type: Spontaneous
  Country: BE (occurrence: BE)
  Receive Date: 20131113
  Receipt Date: 20131113
  Transmission Date: 20140711
  Serious: Yes (Other)
  Sender: FDA-Public Use
  Company Number: BE-ELI_LILLY_AND_COMPANY-BE201311001745

PATIENT
  Age: 56 Year
  Sex: Female

DRUGS (4)
  1. CYMBALTA [Suspect]
     Indication: BACK PAIN
     Dosage: 60 MG, QD
     Route: 065
  2. CYMBALTA [Suspect]
     Dosage: 60 MG, BID
     Route: 065
     Dates: start: 20131024
  3. MORFINE [Concomitant]
     Indication: PRODUCT USED FOR UNKNOWN INDICATION
     Dosage: UNK, UNKNOWN
     Route: 065
  4. ASAFLOW [Concomitant]
     Indication: PRODUCT USED FOR UNKNOWN INDICATION
     Dosage: UNK, UNKNOWN
     Route: 065

REACTIONS (4)
  - Blindness unilateral [Unknown]
  - Eye haemorrhage [Recovering/Resolving]
  - Hypertension [Unknown]
  - Off label use [Unknown]
